FAERS Safety Report 16153082 (Version 1)
Quarter: 2019Q2

REPORT INFORMATION
  Report Type: Spontaneous
  Country: US (occurrence: US)
  Receive Date: 20190403
  Receipt Date: 20190403
  Transmission Date: 20190711
  Serious: No
  Sender: FDA-Public Use
  Company Number: US-PRINSTON PHARMACEUTICAL INC.-2018PRN01094

PATIENT
  Sex: Male
  Weight: 95.24 kg

DRUGS (2)
  1. UNSPECIFIED WATER PILL [Concomitant]
     Active Substance: UNSPECIFIED INGREDIENT
  2. VALSARTAN. [Suspect]
     Active Substance: VALSARTAN
     Indication: HYPERTENSION
     Dosage: 320 MG, 1X/DAY
     Route: 048
     Dates: start: 20180615, end: 2018

REACTIONS (3)
  - Neck pain [Recovering/Resolving]
  - Musculoskeletal pain [Recovering/Resolving]
  - Chest pain [Recovering/Resolving]
